FAERS Safety Report 14112809 (Version 1)
Quarter: 2017Q4

REPORT INFORMATION
  Report Type: Spontaneous
  Country: US (occurrence: US)
  Receive Date: 20171021
  Receipt Date: 20171021
  Transmission Date: 20180321
  Serious: No
  Sender: FDA-Public Use
  Company Number: US-TRIS PHARMA, INC-2017TRISPO00379

PATIENT

DRUGS (2)
  1. DYANAVEL XR [Suspect]
     Active Substance: AMPHETAMINE
     Indication: ATTENTION DEFICIT/HYPERACTIVITY DISORDER
     Dosage: 1 ML, QD
     Route: 048
     Dates: start: 20170907
  2. DYANAVEL XR [Suspect]
     Active Substance: AMPHETAMINE
     Dosage: 2 ML, UNK (INCREASED THE DOSE BY HALF (1/2) ML EVERY 4 DAYS
     Route: 048

REACTIONS (2)
  - Drug ineffective [Unknown]
  - Aggression [Not Recovered/Not Resolved]

NARRATIVE: CASE EVENT DATE: 201709
